FAERS Safety Report 13247796 (Version 1)
Quarter: 2017Q1

REPORT INFORMATION
  Report Type: Spontaneous
  Country: US (occurrence: US)
  Receive Date: 20170217
  Receipt Date: 20170217
  Transmission Date: 20170428
  Serious: Yes (Other)
  Sender: FDA-Public Use
  Company Number: US-ELI_LILLY_AND_COMPANY-US201608003615

PATIENT

DRUGS (3)
  1. CYMBALTA [Suspect]
     Active Substance: DULOXETINE HYDROCHLORIDE
     Dosage: 60 MG, QD
     Route: 048
     Dates: start: 20121106, end: 20130312
  2. CYMBALTA [Suspect]
     Active Substance: DULOXETINE HYDROCHLORIDE
     Indication: DEPRESSION
     Dosage: 30 MG, QD
     Route: 048
     Dates: start: 20121023, end: 20121105
  3. CYMBALTA [Suspect]
     Active Substance: DULOXETINE HYDROCHLORIDE
     Dosage: 60 MG, BID
     Route: 048
     Dates: start: 20130313

REACTIONS (16)
  - Anxiety [Unknown]
  - Drug withdrawal syndrome [Unknown]
  - Irritability [Unknown]
  - Headache [Unknown]
  - Suicidal ideation [Unknown]
  - Sensory disturbance [Unknown]
  - Dysphoria [Unknown]
  - Agitation [Unknown]
  - Paraesthesia [Unknown]
  - Tremor [Unknown]
  - Dizziness [Unknown]
  - Affect lability [Unknown]
  - Confusional state [Unknown]
  - Nausea [Unknown]
  - Diarrhoea [Unknown]
  - Insomnia [Unknown]
